FAERS Safety Report 5126881-4 (Version None)
Quarter: 2006Q3

REPORT INFORMATION
  Report Type: 
  Country: None (occurrence: None)
  Receive Date: 20060825
  Receipt Date: 20060720
  Transmission Date: 20061208
  Serious: No
  Sender: FDA-Public Use
  Company Number: 2006US003203

PATIENT
  Age: 40 Year
  Sex: Female
  Weight: 115.2 kg

DRUGS (8)
  1. ALOXI [Suspect]
     Indication: PROPHYLAXIS OF NAUSEA AND VOMITING
     Dosage: SEE IMAGE
     Route: 042
     Dates: start: 20060126, end: 20060330
  2. ALOXI [Suspect]
     Indication: PROPHYLAXIS OF NAUSEA AND VOMITING
     Dosage: SEE IMAGE
     Route: 042
     Dates: start: 20060427, end: 20060720
  3. DOXORUBICIN HCL [Suspect]
     Indication: PERITONEAL CARCINOMA
     Dosage: 80 MG, SINGLE, INTRAVENOUS
     Route: 042
     Dates: start: 20060720, end: 20060720
  4. HYDROCORTISONE [Concomitant]
  5. BENADRYL /00000402/(DIPHENHYDRAMINE HYDROCHLORIDE) [Concomitant]
  6. CIMETIDINE [Concomitant]
  7. SENOKOT /00142201/(SENNA ALEXANDRINA) [Concomitant]
  8. LEXAPRO [Concomitant]

REACTIONS (3)
  - CHEST DISCOMFORT [None]
  - DYSPNOEA [None]
  - HYPERSENSITIVITY [None]
